FAERS Safety Report 21377504 (Version 2)
Quarter: 2022Q4

REPORT INFORMATION
  Report Type: Spontaneous
  Country: US (occurrence: US)
  Receive Date: 20220926
  Receipt Date: 20221019
  Transmission Date: 20230112
  Serious: Yes (Hospitalization, Other)
  Sender: FDA-Public Use
  Company Number: US-SMITH AND NEPHEW, INC-2022SMT00152

PATIENT
  Sex: Male
  Weight: 134.24 kg

DRUGS (10)
  1. COLLAGENASE SANTYL [Suspect]
     Active Substance: COLLAGENASE CLOSTRIDIUM HISTOLYTICUM
     Indication: Wound
     Dosage: NICKEL AMOUNT, THICK LAYER, 2X/DAY
     Route: 061
     Dates: start: 202208, end: 202209
  2. METFORMIN [Concomitant]
     Active Substance: METFORMIN HYDROCHLORIDE
  3. GLYBURIDE [Concomitant]
     Active Substance: GLYBURIDE
  4. TOPIRAMATE [Concomitant]
     Active Substance: TOPIRAMATE
  5. LYRICA [Concomitant]
     Active Substance: PREGABALIN
  6. IBUPROFEN [Concomitant]
     Active Substance: IBUPROFEN
  7. HYDROCODONE [Concomitant]
     Active Substance: HYDROCODONE
     Dosage: 5 MG, 3X/DAY
  8. CEPHALEXIN [Concomitant]
     Active Substance: CEPHALEXIN
  9. UNSPECIFIED INGREDIENT [Concomitant]
     Active Substance: UNSPECIFIED INGREDIENT
  10. UNSPECIFIED INGREDIENT [Concomitant]
     Active Substance: UNSPECIFIED INGREDIENT

REACTIONS (9)
  - Wound infection bacterial [Recovered/Resolved]
  - Escherichia infection [Unknown]
  - Pathogen resistance [Unknown]
  - Foot amputation [Recovered/Resolved with Sequelae]
  - Peripheral artery occlusion [Recovering/Resolving]
  - Peripheral artery stent insertion [Recovering/Resolving]
  - Vascular stent thrombosis [Recovered/Resolved]
  - Drug ineffective [Recovered/Resolved]
  - Product dose omission issue [Recovered/Resolved]

NARRATIVE: CASE EVENT DATE: 20220101
